FAERS Safety Report 22046610 (Version 1)
Quarter: 2023Q1

REPORT INFORMATION
  Report Type: Report from Study
  Country: EC (occurrence: EC)
  Receive Date: 20230228
  Receipt Date: 20230228
  Transmission Date: 20230417
  Serious: Yes (Hospitalization, Other)
  Sender: FDA-Public Use
  Company Number: EC-NOVOPROD-1005104

PATIENT
  Age: 75 Year
  Sex: Female
  Weight: 85 kg

DRUGS (3)
  1. LANTUS [Concomitant]
     Active Substance: INSULIN GLARGINE
     Indication: Type 2 diabetes mellitus
     Dosage: 30 IU, QD (AT NIGHT)
     Route: 058
     Dates: start: 20221031
  2. NOVORAPID [Suspect]
     Active Substance: INSULIN ASPART
     Indication: Type 2 diabetes mellitus
     Dosage: 10 IU, TID
     Route: 058
     Dates: start: 20221031
  3. NOVORAPID [Suspect]
     Active Substance: INSULIN ASPART
     Dosage: 80 IU, QD (20 IU 4 TIMES A DAY)
     Route: 058

REACTIONS (7)
  - Pancreatitis acute [Recovering/Resolving]
  - Diabetic coma [Unknown]
  - Pleural effusion [Unknown]
  - Drug ineffective [Unknown]
  - Insulin resistance [Unknown]
  - Swelling [Recovered/Resolved]
  - Blood glucose increased [Recovered/Resolved]

NARRATIVE: CASE EVENT DATE: 20221031
